FAERS Safety Report 8890274 (Version 4)
Quarter: 2013Q1

REPORT INFORMATION
  Report Type: Spontaneous
  Country: US (occurrence: US)
  Receive Date: 20121107
  Receipt Date: 20130320
  Transmission Date: 20140127
  Serious: No
  Sender: FDA-Public Use
  Company Number: US-PFIZER INC-2012276215

PATIENT
  Age: 60 Year
  Sex: Male
  Weight: 71.66 kg

DRUGS (15)
  1. CHANTIX [Suspect]
     Indication: SMOKING CESSATION THERAPY
     Dosage: 0.5 MG, 1X/DAY
     Route: 048
     Dates: start: 201209, end: 2012
  2. CHANTIX [Suspect]
     Indication: NICOTINE DEPENDENCE
     Dosage: 1 MG, UNK
     Dates: start: 2012, end: 2012
  3. CHANTIX [Suspect]
     Dosage: 1 MG, 2X/DAY
     Route: 048
     Dates: start: 2012, end: 201212
  4. AZILECT [Concomitant]
     Dosage: 1 MG, 1X/DAY
     Route: 048
     Dates: start: 20120815
  5. HYDROCODONE W/ACETAMINOPHEN [Concomitant]
     Dosage: 5 MG/500 MG 1 TABLET EVERY 6 HOURS AS NEEDED
     Route: 048
     Dates: start: 20121023
  6. HYDROCODONE W/ACETAMINOPHEN [Concomitant]
     Dosage: 5 MG/500 MG 1 CAPSULE EVERY 6 HOURS
     Route: 048
     Dates: start: 20121010
  7. HYDROXYZINE [Concomitant]
     Dosage: 50 MG, 4X/DAY
     Route: 048
     Dates: start: 20120907
  8. PROAIR HFA [Concomitant]
     Dosage: 2 DF (2 PUFFS EVERY 4 HOURS BY INHALATION)
     Dates: start: 20120904
  9. LEVODOPA-CARBIDOPA [Concomitant]
     Dosage: 25 MG-100 MG 1 TABLET 3 TIMES A DAY
     Route: 048
     Dates: start: 20120815
  10. ADDERALL XR [Concomitant]
     Dosage: 20 MG, 1X/DAY
     Route: 048
     Dates: start: 20120815
  11. IBUPROFEN [Concomitant]
     Dosage: 800 MG, 3X/DAY
     Route: 048
     Dates: start: 20120815
  12. PRAMIPEXOLE [Concomitant]
     Dosage: 0.5 MG, 3X/DAY
     Route: 048
     Dates: start: 20120815
  13. KETOROLAC [Concomitant]
     Dosage: 10 MG EVERY 8 HOURS AS NEEDED
  14. FLOVENT [Concomitant]
     Dosage: 2 DF (2 PUFFS TWICE A DAY BY INHALATION)
     Dates: start: 20120815
  15. QUETIAPINE [Concomitant]
     Dosage: 300 MG EVERY DAY AT BEDTIME
     Route: 048
     Dates: start: 20120815

REACTIONS (1)
  - Abnormal dreams [Unknown]
